FAERS Safety Report 25983270 (Version 1)
Quarter: 2025Q4

REPORT INFORMATION
  Report Type: Spontaneous
  Country: EU (occurrence: EU)
  Receive Date: 20251031
  Receipt Date: 20251031
  Transmission Date: 20260118
  Serious: Yes (Death, Life-Threatening, Hospitalization)
  Sender: MYLAN
  Company Number: EU-MYLANLABS-2025M1092747

PATIENT
  Age: 26 Year
  Sex: Female

DRUGS (60)
  1. ACETAMINOPHEN [Suspect]
     Active Substance: ACETAMINOPHEN
     Indication: Product used for unknown indication
     Dosage: 8000 MILLIGRAM (PILL)
  2. ACETAMINOPHEN [Suspect]
     Active Substance: ACETAMINOPHEN
     Dosage: 8000 MILLIGRAM (PILL)
     Route: 048
  3. ACETAMINOPHEN [Suspect]
     Active Substance: ACETAMINOPHEN
     Dosage: 8000 MILLIGRAM (PILL)
     Route: 048
  4. ACETAMINOPHEN [Suspect]
     Active Substance: ACETAMINOPHEN
     Dosage: 8000 MILLIGRAM (PILL)
  5. AGOMELATINE [Suspect]
     Active Substance: AGOMELATINE
     Indication: Product used for unknown indication
     Dosage: 3150 MILLIGRAM (PILL)
  6. AGOMELATINE [Suspect]
     Active Substance: AGOMELATINE
     Dosage: 3150 MILLIGRAM (PILL)
     Route: 048
  7. AGOMELATINE [Suspect]
     Active Substance: AGOMELATINE
     Dosage: 3150 MILLIGRAM (PILL)
     Route: 048
  8. AGOMELATINE [Suspect]
     Active Substance: AGOMELATINE
     Dosage: 3150 MILLIGRAM (PILL)
  9. ASPIRIN [Suspect]
     Active Substance: ASPIRIN
     Indication: Product used for unknown indication
     Dosage: 5000 MILLIGRAM (PILL)
  10. ASPIRIN [Suspect]
     Active Substance: ASPIRIN
     Dosage: 5000 MILLIGRAM (PILL)
     Route: 048
  11. ASPIRIN [Suspect]
     Active Substance: ASPIRIN
     Dosage: 5000 MILLIGRAM (PILL)
     Route: 048
  12. ASPIRIN [Suspect]
     Active Substance: ASPIRIN
     Dosage: 5000 MILLIGRAM (PILL)
  13. CAFFEINE [Suspect]
     Active Substance: CAFFEINE
     Indication: Product used for unknown indication
     Dosage: 1000 MILLIGRAM (PILL)
  14. CAFFEINE [Suspect]
     Active Substance: CAFFEINE
     Dosage: 1000 MILLIGRAM (PILL)
     Route: 048
  15. CAFFEINE [Suspect]
     Active Substance: CAFFEINE
     Dosage: 1000 MILLIGRAM (PILL)
     Route: 048
  16. CAFFEINE [Suspect]
     Active Substance: CAFFEINE
     Dosage: 1000 MILLIGRAM (PILL)
  17. IBUPROFEN [Suspect]
     Active Substance: IBUPROFEN
     Indication: Product used for unknown indication
     Dosage: 25200 MILLIGRAM (PILL)
  18. IBUPROFEN [Suspect]
     Active Substance: IBUPROFEN
     Dosage: 25200 MILLIGRAM (PILL)
     Route: 048
  19. IBUPROFEN [Suspect]
     Active Substance: IBUPROFEN
     Dosage: 25200 MILLIGRAM (PILL)
     Route: 048
  20. IBUPROFEN [Suspect]
     Active Substance: IBUPROFEN
     Dosage: 25200 MILLIGRAM (PILL)
  21. PAROXETINE [Suspect]
     Active Substance: PAROXETINE
     Indication: Product used for unknown indication
     Dosage: 4000 MILLIGRAM (PILL)
  22. PAROXETINE [Suspect]
     Active Substance: PAROXETINE
     Indication: Depression
     Dosage: 4000 MILLIGRAM (PILL)
     Route: 048
  23. PAROXETINE [Suspect]
     Active Substance: PAROXETINE
     Dosage: 4000 MILLIGRAM (PILL)
     Route: 048
  24. PAROXETINE [Suspect]
     Active Substance: PAROXETINE
     Dosage: 4000 MILLIGRAM (PILL)
  25. PREDNISOLONE [Suspect]
     Active Substance: PREDNISOLONE
     Indication: Acute respiratory distress syndrome
     Dosage: UNK
  26. PREDNISOLONE [Suspect]
     Active Substance: PREDNISOLONE
     Dosage: UNK
     Route: 065
  27. PREDNISOLONE [Suspect]
     Active Substance: PREDNISOLONE
     Dosage: UNK
     Route: 065
  28. PREDNISOLONE [Suspect]
     Active Substance: PREDNISOLONE
     Dosage: UNK
  29. OLANZAPINE [Suspect]
     Active Substance: OLANZAPINE
     Indication: Serotonin syndrome
     Dosage: 10 MILLIGRAM, QD
  30. OLANZAPINE [Suspect]
     Active Substance: OLANZAPINE
     Dosage: 10 MILLIGRAM, QD
     Route: 065
  31. OLANZAPINE [Suspect]
     Active Substance: OLANZAPINE
     Dosage: 10 MILLIGRAM, QD
     Route: 065
  32. OLANZAPINE [Suspect]
     Active Substance: OLANZAPINE
     Dosage: 10 MILLIGRAM, QD
  33. DEXAMETHASONE [Suspect]
     Active Substance: DEXAMETHASONE
     Indication: Acute respiratory distress syndrome
     Dosage: UNK
  34. DEXAMETHASONE [Suspect]
     Active Substance: DEXAMETHASONE
     Dosage: UNK
     Route: 065
  35. DEXAMETHASONE [Suspect]
     Active Substance: DEXAMETHASONE
     Dosage: UNK
     Route: 065
  36. DEXAMETHASONE [Suspect]
     Active Substance: DEXAMETHASONE
     Dosage: UNK
  37. ACETYLCYSTEINE [Concomitant]
     Active Substance: ACETYLCYSTEINE
     Indication: Overdose
     Dosage: UNK
  38. ACETYLCYSTEINE [Concomitant]
     Active Substance: ACETYLCYSTEINE
     Dosage: UNK
     Route: 065
  39. ACETYLCYSTEINE [Concomitant]
     Active Substance: ACETYLCYSTEINE
     Dosage: UNK
     Route: 065
  40. ACETYLCYSTEINE [Concomitant]
     Active Substance: ACETYLCYSTEINE
     Dosage: UNK
  41. AMPICILLIN SODIUM\SULBACTAM SODIUM [Concomitant]
     Active Substance: AMPICILLIN SODIUM\SULBACTAM SODIUM
     Indication: Evidence based treatment
     Dosage: UNK
  42. AMPICILLIN SODIUM\SULBACTAM SODIUM [Concomitant]
     Active Substance: AMPICILLIN SODIUM\SULBACTAM SODIUM
     Dosage: UNK
     Route: 065
  43. AMPICILLIN SODIUM\SULBACTAM SODIUM [Concomitant]
     Active Substance: AMPICILLIN SODIUM\SULBACTAM SODIUM
     Dosage: UNK
     Route: 065
  44. AMPICILLIN SODIUM\SULBACTAM SODIUM [Concomitant]
     Active Substance: AMPICILLIN SODIUM\SULBACTAM SODIUM
     Dosage: UNK
  45. SUFENTANIL [Concomitant]
     Active Substance: SUFENTANIL
     Indication: Sedative therapy
     Dosage: UNK
  46. SUFENTANIL [Concomitant]
     Active Substance: SUFENTANIL
     Dosage: UNK
  47. SUFENTANIL [Concomitant]
     Active Substance: SUFENTANIL
     Dosage: UNK
     Route: 065
  48. SUFENTANIL [Concomitant]
     Active Substance: SUFENTANIL
     Dosage: UNK
     Route: 065
  49. SUFENTANIL [Concomitant]
     Active Substance: SUFENTANIL
     Dosage: UNK (REDUCED)
  50. SUFENTANIL [Concomitant]
     Active Substance: SUFENTANIL
     Dosage: UNK (REDUCED)
  51. SUFENTANIL [Concomitant]
     Active Substance: SUFENTANIL
     Dosage: UNK (REDUCED)
     Route: 065
  52. SUFENTANIL [Concomitant]
     Active Substance: SUFENTANIL
     Dosage: UNK (REDUCED)
     Route: 065
  53. MIDAZOLAM [Concomitant]
     Active Substance: MIDAZOLAM
     Indication: Sedative therapy
     Dosage: UNK (REDUCED)
  54. MIDAZOLAM [Concomitant]
     Active Substance: MIDAZOLAM
     Dosage: UNK (REDUCED)
     Route: 065
  55. MIDAZOLAM [Concomitant]
     Active Substance: MIDAZOLAM
     Dosage: UNK (REDUCED)
     Route: 065
  56. MIDAZOLAM [Concomitant]
     Active Substance: MIDAZOLAM
     Dosage: UNK (REDUCED)
  57. MEROPENEM [Concomitant]
     Active Substance: MEROPENEM
     Indication: Evidence based treatment
     Dosage: UNK
  58. MEROPENEM [Concomitant]
     Active Substance: MEROPENEM
     Dosage: UNK
     Route: 065
  59. MEROPENEM [Concomitant]
     Active Substance: MEROPENEM
     Dosage: UNK
     Route: 065
  60. MEROPENEM [Concomitant]
     Active Substance: MEROPENEM
     Dosage: UNK

REACTIONS (21)
  - Respiratory failure [Fatal]
  - Acute respiratory distress syndrome [Fatal]
  - Overdose [Fatal]
  - Toxicity to various agents [Fatal]
  - Completed suicide [Fatal]
  - Serotonin syndrome [Fatal]
  - Drug ineffective [Fatal]
  - Pneumonia aspiration [Unknown]
  - Tracheal injury [Unknown]
  - Lung infiltration [Unknown]
  - Hypotension [Unknown]
  - Pyrexia [Unknown]
  - Agitation [Unknown]
  - Somnolence [Unknown]
  - Disorientation [Unknown]
  - Tachycardia [Unknown]
  - Mydriasis [Unknown]
  - Lividity [Unknown]
  - Clonus [Unknown]
  - Delirium [Unknown]
  - Off label use [Unknown]
